FAERS Safety Report 21748710 (Version 8)
Quarter: 2023Q1

REPORT INFORMATION
  Report Type: Spontaneous
  Country: GB (occurrence: GB)
  Receive Date: 20221219
  Receipt Date: 20230224
  Transmission Date: 20230418
  Serious: Yes (Hospitalization, Other)
  Sender: FDA-Public Use
  Company Number: GB-MYLANLABS-2022M1139236

PATIENT
  Age: 33 Year
  Sex: Female

DRUGS (3)
  1. CLOZARIL [Suspect]
     Active Substance: CLOZAPINE
     Indication: Schizophrenia
     Dosage: UNK
     Route: 048
     Dates: start: 20191129
  2. CLOZARIL [Suspect]
     Active Substance: CLOZAPINE
     Dosage: 75 MILLIGRAM (MORNING)
     Route: 048
  3. CLOZARIL [Suspect]
     Active Substance: CLOZAPINE
     Dosage: UNK
     Route: 048
     Dates: start: 20230210

REACTIONS (16)
  - Overdose [Unknown]
  - Mental impairment [Unknown]
  - Suicidal ideation [Unknown]
  - Schizophrenia [Unknown]
  - Suicide attempt [Unknown]
  - Anorexia nervosa [Unknown]
  - Condition aggravated [Unknown]
  - Blood pressure decreased [Unknown]
  - Depressed mood [Unknown]
  - Self-injurious ideation [Unknown]
  - Decreased eye contact [Unknown]
  - Fluid intake reduced [Unknown]
  - White blood cell count decreased [Recovered/Resolved]
  - Neutrophil count decreased [Recovered/Resolved]
  - Off label use [Unknown]
  - Contraindicated product administered [Unknown]

NARRATIVE: CASE EVENT DATE: 20221221
